FAERS Safety Report 24531601 (Version 1)
Quarter: 2024Q4

REPORT INFORMATION
  Report Type: Report from Study
  Country: US (occurrence: US)
  Receive Date: 20241022
  Receipt Date: 20241022
  Transmission Date: 20250115
  Serious: No
  Sender: ROCHE
  Company Number: US-ROCHE-3486519

PATIENT
  Age: 80 Year
  Sex: Male

DRUGS (8)
  1. PULMOZYME [Suspect]
     Active Substance: DORNASE ALFA
     Indication: Pneumonia pseudomonal
     Dosage: NEBULIZE THE CONTENTS OF 1 VIALS TWICE A DAY AS DIRECTED, SOLUTION, NON-ORAL
     Route: 065
  2. PULMOZYME [Suspect]
     Active Substance: DORNASE ALFA
     Indication: Pseudomonas infection
  3. PULMOZYME [Suspect]
     Active Substance: DORNASE ALFA
     Indication: Dyspnoea
  4. PULMOZYME [Suspect]
     Active Substance: DORNASE ALFA
     Indication: Chronic respiratory failure
  5. PULMOZYME [Suspect]
     Active Substance: DORNASE ALFA
     Indication: Acute respiratory failure
  6. PULMOZYME [Suspect]
     Active Substance: DORNASE ALFA
     Indication: Chronic obstructive pulmonary disease
  7. PULMOZYME [Suspect]
     Active Substance: DORNASE ALFA
     Indication: Cough
  8. PULMOZYME [Suspect]
     Active Substance: DORNASE ALFA
     Indication: Hypoxia

REACTIONS (2)
  - Off label use [Unknown]
  - No adverse event [Unknown]
